FAERS Safety Report 6216185-0 (Version None)
Quarter: 2009Q2

REPORT INFORMATION
  Report Type: 
  Country: None (occurrence: None)
  Receive Date: 20090605
  Receipt Date: 20090529
  Transmission Date: 20091009
  Serious: Yes (Other)
  Sender: FDA-Public Use
  Company Number: B0576513A

PATIENT
  Age: 30 Year
  Sex: Male

DRUGS (1)
  1. ALLI [Suspect]
     Dosage: 3CAP PER DAY
     Route: 065
     Dates: start: 20090508, end: 20090520

REACTIONS (2)
  - HAEMATOCHEZIA [None]
  - RECTAL HAEMORRHAGE [None]
